FAERS Safety Report 13959539 (Version 2)
Quarter: 2017Q3

REPORT INFORMATION
  Report Type: Spontaneous
  Country: BG (occurrence: BG)
  Receive Date: 20170912
  Receipt Date: 20170918
  Transmission Date: 20171128
  Serious: Yes (Other)
  Sender: FDA-Public Use
  Company Number: BG-GLENMARK PHARMACEUTICALS-2017GMK028764

PATIENT
  Age: 16 Year
  Sex: Female

DRUGS (1)
  1. CLOBETASOL DIPROPIONATE [Suspect]
     Active Substance: CLOBETASOL PROPIONATE
     Indication: DYSHIDROTIC ECZEMA
     Dosage: UNK
     Route: 061

REACTIONS (3)
  - Impetigo [Recovering/Resolving]
  - Condition aggravated [Recovering/Resolving]
  - Staphylococcal infection [Recovering/Resolving]
